FAERS Safety Report 6126530-2 (Version None)
Quarter: 2009Q1

REPORT INFORMATION
  Report Type: 
  Country: None (occurrence: None)
  Receive Date: 20090320
  Receipt Date: 20090312
  Transmission Date: 20090719
  Serious: Yes (Other)
  Sender: FDA-Public Use
  Company Number: US-PFIZER INC-2009183097

PATIENT
  Sex: Male
  Weight: 67 kg

DRUGS (5)
  1. LIPITOR [Suspect]
     Indication: BLOOD CHOLESTEROL INCREASED
     Dosage: 40 MG, 1X/DAY
     Dates: start: 19990101
  2. ACETYLSALICYLIC ACID [Concomitant]
     Dosage: UNK
  3. MAXZIDE [Concomitant]
     Dosage: UNK
     Dates: start: 19990101
  4. LISINOPRIL [Concomitant]
     Indication: HYPERTENSION
     Dosage: UNK
     Dates: start: 19990101
  5. ATENOLOL [Concomitant]
     Indication: HYPERTENSION
     Dosage: UNK
     Dates: start: 19990101

REACTIONS (2)
  - MYALGIA [None]
  - VASCULAR GRAFT [None]
